FAERS Safety Report 9677352 (Version 1)
Quarter: 2013Q4

REPORT INFORMATION
  Report Type: Spontaneous
  Country: BR (occurrence: BR)
  Receive Date: 20131108
  Receipt Date: 20131108
  Transmission Date: 20140711
  Serious: Yes (Other)
  Sender: FDA-Public Use
  Company Number: BR-SA-2013SA112448

PATIENT
  Sex: Female
  Weight: 76 kg

DRUGS (1)
  1. LANTUS [Suspect]
     Indication: DIABETES MELLITUS
     Route: 058
     Dates: start: 2008

REACTIONS (3)
  - Blindness [Not Recovered/Not Resolved]
  - Macular degeneration [Unknown]
  - Injection site nodule [Not Recovered/Not Resolved]
